FAERS Safety Report 19394798 (Version 1)
Quarter: 2021Q2

REPORT INFORMATION
  Report Type: Spontaneous
  Country: CA (occurrence: CA)
  Receive Date: 20210609
  Receipt Date: 20210609
  Transmission Date: 20210717
  Serious: Yes (Other)
  Sender: FDA-Public Use
  Company Number: CA-ROCHE-2843347

PATIENT
  Sex: Female

DRUGS (23)
  1. LIRAGLUTIDE [Concomitant]
     Active Substance: LIRAGLUTIDE
  2. TYLENOL [Concomitant]
     Active Substance: ACETAMINOPHEN
  3. ACTEMRA [Suspect]
     Active Substance: TOCILIZUMAB
     Indication: RHEUMATOID ARTHRITIS
     Route: 058
  4. RITUXIMAB. [Suspect]
     Active Substance: RITUXIMAB
     Indication: RHEUMATOID ARTHRITIS
     Route: 042
  5. BENADRYL [Concomitant]
     Active Substance: DIPHENHYDRAMINE HYDROCHLORIDE
  6. CYMBALTA [Concomitant]
     Active Substance: DULOXETINE HYDROCHLORIDE
  7. FERROUS GLUCONATE [Concomitant]
     Active Substance: FERROUS GLUCONATE
  8. ZOLPIDEM [Concomitant]
     Active Substance: ZOLPIDEM TARTRATE
  9. ESOMEPRAZOLE. [Concomitant]
     Active Substance: ESOMEPRAZOLE MAGNESIUM
  10. OXYNEO [Concomitant]
     Active Substance: OXYCODONE
  11. SIMVASTATIN. [Concomitant]
     Active Substance: SIMVASTATIN
  12. DEXEDRINE [Concomitant]
     Active Substance: DEXTROAMPHETAMINE SULFATE
  13. MIRABEGRON [Concomitant]
     Active Substance: MIRABEGRON
  14. RITALIN [Concomitant]
     Active Substance: METHYLPHENIDATE HYDROCHLORIDE
  15. XENICAL [Concomitant]
     Active Substance: ORLISTAT
  16. PREDNISONE. [Concomitant]
     Active Substance: PREDNISONE
  17. ATIVAN [Concomitant]
     Active Substance: LORAZEPAM
  18. LASIX [Concomitant]
     Active Substance: FUROSEMIDE
  19. LORAZEPAM. [Concomitant]
     Active Substance: LORAZEPAM
  20. ROSUVASTATIN CALCIUM. [Concomitant]
     Active Substance: ROSUVASTATIN CALCIUM
  21. SALVENT [SALBUTAMOL] [Concomitant]
  22. VENLAFAXINE HYDROCHLORIDE. [Concomitant]
     Active Substance: VENLAFAXINE HYDROCHLORIDE
  23. VERAPAMIL [Concomitant]
     Active Substance: VERAPAMIL HYDROCHLORIDE

REACTIONS (11)
  - Coccydynia [Not Recovered/Not Resolved]
  - Pollakiuria [Not Recovered/Not Resolved]
  - Drug hypersensitivity [Not Recovered/Not Resolved]
  - Dyspnoea [Not Recovered/Not Resolved]
  - Fibromyalgia [Not Recovered/Not Resolved]
  - Foot fracture [Not Recovered/Not Resolved]
  - Arthritis [Not Recovered/Not Resolved]
  - Depression [Not Recovered/Not Resolved]
  - Anxiety [Not Recovered/Not Resolved]
  - Narcolepsy [Not Recovered/Not Resolved]
  - Mixed connective tissue disease [Not Recovered/Not Resolved]
